FAERS Safety Report 14861613 (Version 4)
Quarter: 2019Q1

REPORT INFORMATION
  Report Type: Spontaneous
  Country: ES (occurrence: ES)
  Receive Date: 20180508
  Receipt Date: 20190220
  Transmission Date: 20190417
  Serious: Yes (Death, Hospitalization, Other)
  Sender: FDA-Public Use
  Company Number: ES-ALEXION PHARMACEUTICALS INC.-A201805481

PATIENT
  Age: 50 Year
  Sex: Male

DRUGS (3)
  1. SOLIRIS [Suspect]
     Active Substance: ECULIZUMAB
     Dosage: UNK
     Route: 065
     Dates: end: 20181019
  2. INSULIN [Concomitant]
     Active Substance: INSULIN NOS
     Indication: DIABETES MELLITUS
     Dosage: UNK
     Route: 065
  3. SOLIRIS [Suspect]
     Active Substance: ECULIZUMAB
     Indication: PAROXYSMAL NOCTURNAL HAEMOGLOBINURIA
     Dosage: 900 MG, EVERY 15 DAYS
     Route: 042
     Dates: start: 200910

REACTIONS (10)
  - Refractoriness to platelet transfusion [Unknown]
  - Gastrointestinal inflammation [Recovered/Resolved]
  - Mesenteric panniculitis [Recovered/Resolved]
  - Incorrect dose administered [Not Recovered/Not Resolved]
  - Cholecystitis [Recovered/Resolved]
  - Acute lymphocytic leukaemia [Fatal]
  - Cholelithiasis [Recovered/Resolved]
  - Pseudomonas test positive [Recovered/Resolved]
  - Pyrexia [Recovered/Resolved]
  - Haematuria [Recovered/Resolved]

NARRATIVE: CASE EVENT DATE: 200910
